FAERS Safety Report 7738022-5 (Version None)
Quarter: 2011Q3

REPORT INFORMATION
  Report Type: 
  Country: None (occurrence: None)
  Receive Date: 20110908
  Receipt Date: 20110824
  Transmission Date: 20111222
  Serious: Yes (Hospitalization)
  Sender: FDA-Public Use
  Company Number: IT-BAYER-2011-077237

PATIENT
  Age: 66 Year
  Sex: Female

DRUGS (1)
  1. ACETYLSALICYLIC ACID SRT [Suspect]
     Indication: TACHYCARDIA
     Dosage: DAILY DOSE 1 DF
     Route: 048
     Dates: start: 20110618, end: 20110620

REACTIONS (2)
  - DYSPNOEA [None]
  - CHEST PAIN [None]
